FAERS Safety Report 16639288 (Version 2)
Quarter: 2019Q3

REPORT INFORMATION
  Report Type: Report from Study
  Country: US (occurrence: US)
  Receive Date: 20190726
  Receipt Date: 20190729
  Transmission Date: 20191004
  Serious: No
  Sender: FDA-Public Use
  Company Number: PHEH2019US030874

PATIENT
  Sex: Male

DRUGS (1)
  1. COSENTYX [Suspect]
     Active Substance: SECUKINUMAB
     Indication: PSORIASIS
     Route: 065
     Dates: start: 20190719

REACTIONS (4)
  - Cough [Unknown]
  - Injection site bruising [Unknown]
  - Night sweats [Unknown]
  - Urinary tract infection [Not Recovered/Not Resolved]
